FAERS Safety Report 11969647 (Version 2)
Quarter: 2018Q1

REPORT INFORMATION
  Report Type: Spontaneous
  Country: US (occurrence: US)
  Receive Date: 20160128
  Receipt Date: 20180315
  Transmission Date: 20180508
  Serious: Yes (Hospitalization, Other)
  Sender: FDA-Public Use
  Company Number: US-ENDO PHARMACEUTICALS INC.-2015-003783

PATIENT
  Age: 55 Year
  Sex: Male
  Weight: 95.24 kg

DRUGS (7)
  1. DEPO-TESTOSTERONE [Suspect]
     Active Substance: TESTOSTERONE CYPIONATE
     Indication: ANDROGEN REPLACEMENT THERAPY
     Dosage: UNK UNKNOWN, BIWEEKLY
     Route: 065
     Dates: start: 1977, end: 2010
  2. TESTOSTERONE CYPIONATE. [Suspect]
     Active Substance: TESTOSTERONE CYPIONATE
     Dosage: UNK, UNK
     Route: 065
     Dates: start: 20100704, end: 20110609
  3. TESTOSTERONE CYPIONATE. [Suspect]
     Active Substance: TESTOSTERONE CYPIONATE
     Indication: ANDROGEN REPLACEMENT THERAPY
     Dosage: UNK, UNK
     Route: 065
     Dates: start: 20150509, end: 20150802
  4. TESTOPEL [Suspect]
     Active Substance: TESTOSTERONE
     Indication: ANDROGEN REPLACEMENT THERAPY
     Route: 058
     Dates: start: 20110622, end: 20140128
  5. TESTOSTERONE CYPIONATE. [Suspect]
     Active Substance: TESTOSTERONE CYPIONATE
     Dosage: UNK, UNK
     Route: 065
     Dates: start: 20140807, end: 20140914
  6. AXIRON [Suspect]
     Active Substance: TESTOSTERONE
     Indication: ANDROGEN REPLACEMENT THERAPY
     Dosage: UNK UNKNOWN, DAILY
     Route: 065
     Dates: start: 20111221
  7. TESTOSTERONE CYPIONATE. [Suspect]
     Active Substance: TESTOSTERONE CYPIONATE
     Dosage: UNK UNKNOWN, BIWEEKLY
     Route: 065
     Dates: start: 20141016, end: 20150411

REACTIONS (2)
  - Deep vein thrombosis [Unknown]
  - Hepatitis B [Unknown]

NARRATIVE: CASE EVENT DATE: 20111123
